FAERS Safety Report 21077551 (Version 1)
Quarter: 2022Q3

REPORT INFORMATION
  Report Type: Report from Study
  Country: US (occurrence: US)
  Receive Date: 20220713
  Receipt Date: 20220713
  Transmission Date: 20221026
  Serious: Yes (Other)
  Sender: FDA-Public Use
  Company Number: US-BAYER-2022A094590

PATIENT
  Age: 76 Year
  Sex: Female

DRUGS (3)
  1. ADEMPAS [Suspect]
     Active Substance: RIOCIGUAT
     Indication: Pulmonary arterial hypertension
     Dosage: UNK
  2. ADEMPAS [Suspect]
     Active Substance: RIOCIGUAT
     Indication: Pulmonary arterial hypertension
     Dosage: 1.5 MG, TID
     Route: 048
  3. ADEMPAS [Suspect]
     Active Substance: RIOCIGUAT
     Indication: Pulmonary arterial hypertension
     Dosage: 1MG, TID
     Route: 048
     Dates: start: 20220513

REACTIONS (7)
  - Urticaria [Recovering/Resolving]
  - Thrombosis [None]
  - Dyspnoea exertional [None]
  - Dyspepsia [None]
  - Diarrhoea [None]
  - Rash pruritic [Recovering/Resolving]
  - Limb discomfort [None]
